FAERS Safety Report 9902485 (Version 2)
Quarter: 2014Q1

REPORT INFORMATION
  Report Type: Spontaneous
  Country: US (occurrence: US)
  Receive Date: 20140217
  Receipt Date: 20140217
  Transmission Date: 20141002
  Serious: Yes (Other)
  Sender: FDA-Public Use
  Company Number: US-JNJFOC-20140102263

PATIENT
  Sex: Male

DRUGS (5)
  1. XARELTO [Suspect]
     Indication: PRODUCT USED FOR UNKNOWN INDICATION
     Route: 048
     Dates: end: 20131224
  2. XARELTO [Suspect]
     Indication: PRODUCT USED FOR UNKNOWN INDICATION
     Route: 048
     Dates: start: 20131126
  3. CRESTOR [Concomitant]
     Indication: BLOOD CHOLESTEROL
     Route: 065
  4. LORAZEPAM [Concomitant]
     Indication: ANXIETY
     Route: 048
  5. VITAMIN D3 [Concomitant]
     Route: 065

REACTIONS (2)
  - Foot fracture [Unknown]
  - Neuropathy peripheral [Recovered/Resolved]
